FAERS Safety Report 10215201 (Version 2)
Quarter: 2014Q2

REPORT INFORMATION
  Report Type: Report from Study
  Country: JP (occurrence: JP)
  Receive Date: 20140603
  Receipt Date: 20140603
  Transmission Date: 20141212
  Serious: Yes (Other)
  Sender: FDA-Public Use
  Company Number: PHHY2013JP117923

PATIENT
  Age: 67 Year
  Sex: Female

DRUGS (1)
  1. LEPONEX / CLOZARIL [Suspect]
     Indication: SCHIZOPHRENIA, DISORGANISED TYPE
     Dosage: 12.5 MG
     Dates: start: 20121113, end: 20131215

REACTIONS (3)
  - Parkinsonism [Not Recovered/Not Resolved]
  - Constipation [Not Recovered/Not Resolved]
  - Glucose tolerance impaired [Unknown]
